FAERS Safety Report 12590346 (Version 1)
Quarter: 2016Q3

REPORT INFORMATION
  Report Type: Report from Study
  Country: US (occurrence: US)
  Receive Date: 20160725
  Receipt Date: 20160725
  Transmission Date: 20161109
  Serious: Yes (Hospitalization, Other)
  Sender: FDA-Public Use
  Company Number: US-009507513-1607USA010337

PATIENT
  Age: 47 Year
  Sex: Male

DRUGS (17)
  1. PROTONIX [Concomitant]
     Active Substance: PANTOPRAZOLE SODIUM
     Dosage: 40 MG, QD
  2. IRINOTECAN HYDROCHLORIDE. [Suspect]
     Active Substance: IRINOTECAN HYDROCHLORIDE
     Indication: GLIOBLASTOMA
     Dosage: DOSE 125 MG/M2 (226 MG, QOW)
     Route: 042
     Dates: start: 20140815
  3. CHOLECALCIFEROL [Concomitant]
     Active Substance: CHOLECALCIFEROL
     Dosage: 1000 UNITS DAILY
  4. TEMODAR [Suspect]
     Active Substance: TEMOZOLOMIDE
     Indication: GLIOBLASTOMA
     Dosage: 50 MG/KG, QD
     Route: 065
  5. CORTEF [Concomitant]
     Active Substance: HYDROCORTISONE
     Dosage: 10 MG IN PM
  6. ZOFRAN [Concomitant]
     Active Substance: ONDANSETRON HYDROCHLORIDE
     Indication: NAUSEA
     Dosage: 9 MG, PRN
  7. COMPAZINE [Concomitant]
     Active Substance: PROCHLORPERAZINE MALEATE
     Indication: NAUSEA
     Dosage: 10 MG, PRN
  8. CARBOPLATIN. [Suspect]
     Active Substance: CARBOPLATIN
     Indication: GLIOBLASTOMA
     Dosage: 4 AUC (500 MG, 1 IN 4 WK)
     Route: 042
     Dates: start: 20140815
  9. RITALIN [Concomitant]
     Active Substance: METHYLPHENIDATE HYDROCHLORIDE
     Dosage: 20 MG, QD
  10. LEXAPRO [Concomitant]
     Active Substance: ESCITALOPRAM OXALATE
     Dosage: 20 MG, QD
  11. MIRALAX [Concomitant]
     Active Substance: POLYETHYLENE GLYCOL 3350
     Dosage: 17 G, PRN
  12. VITAMINS (UNSPECIFIED) [Concomitant]
     Active Substance: VITAMINS
  13. DEXAMETHASONE SODIUM PHOSPHATE. [Concomitant]
     Active Substance: DEXAMETHASONE SODIUM PHOSPHATE
     Dosage: 2 MG, QD
  14. CORTEF [Concomitant]
     Active Substance: HYDROCORTISONE
     Dosage: 20 MG IN AM
  15. VP-16 [Concomitant]
     Active Substance: ETOPOSIDE
     Dosage: 50 MG/M2 TWO WEEKS ON/OFF
  16. AVASTIN [Suspect]
     Active Substance: BEVACIZUMAB
     Indication: GLIOBLASTOMA
     Dosage: 700 MG,(10 MG/KG) QOW
     Route: 042
     Dates: start: 20141022
  17. AVASTIN [Suspect]
     Active Substance: BEVACIZUMAB
     Dosage: 10 MG/KG, QOW
     Route: 042
     Dates: start: 20140815

REACTIONS (23)
  - Pyramidal tract syndrome [Unknown]
  - Hypoalbuminaemia [Unknown]
  - Hyponatraemia [Unknown]
  - Seizure [Unknown]
  - Hyperglycaemia [Unknown]
  - Platelet count decreased [Unknown]
  - Memory impairment [Unknown]
  - Aspartate aminotransferase increased [Unknown]
  - Lymphocyte count decreased [Unknown]
  - Upper-airway cough syndrome [Unknown]
  - Hypertension [Unknown]
  - White blood cell count decreased [Unknown]
  - Alopecia [Unknown]
  - Neutrophil count decreased [Unknown]
  - Anaemia [Unknown]
  - Nausea [Unknown]
  - Fatigue [Unknown]
  - Alanine aminotransferase increased [Unknown]
  - Headache [Unknown]
  - Gait disturbance [Unknown]
  - Dysphonia [Unknown]
  - Constipation [Unknown]
  - Muscular weakness [Unknown]

NARRATIVE: CASE EVENT DATE: 20140915
